FAERS Safety Report 4749645-X (Version None)
Quarter: 2005Q3

REPORT INFORMATION
  Report Type: 
  Country: None (occurrence: None)
  Receive Date: 20050819
  Receipt Date: 20050819
  Transmission Date: 20060218
  Serious: Yes (Life-Threatening, Hospitalization, Disabling)
  Sender: FDA-Public Use
  Company Number: None

PATIENT
  Age: 45 Year
  Sex: Female
  Weight: 70.3075 kg

DRUGS (3)
  1. DAPSONE [Suspect]
     Indication: DERMATITIS HERPETIFORMIS
     Dosage: 2 TABLETS   TWICE A DAY  PO
     Route: 048
     Dates: start: 20030510, end: 20050414
  2. VITAMIN B-12 [Concomitant]
  3. LEXAPRO [Concomitant]

REACTIONS (5)
  - HAEMOLYTIC ANAEMIA [None]
  - JAUNDICE [None]
  - METHAEMOGLOBINAEMIA [None]
  - NERVE INJURY [None]
  - NEUROPATHY PERIPHERAL [None]
